FAERS Safety Report 5600876-6 (Version None)
Quarter: 2008Q1

REPORT INFORMATION
  Report Type: 
  Country: None (occurrence: None)
  Receive Date: 20080124
  Receipt Date: 20080117
  Transmission Date: 20080703
  Serious: Yes (Hospitalization)
  Sender: FDA-Public Use
  Company Number: US-JNJFOC-20080104830

PATIENT
  Sex: Male
  Weight: 107.96 kg

DRUGS (12)
  1. RAZADYNE [Suspect]
     Indication: DEMENTIA
     Route: 048
  2. CARBOLEVO [Concomitant]
     Indication: PARKINSON'S DISEASE
  3. TOPROL-XL [Concomitant]
     Indication: BLOOD PRESSURE
  4. DETROL [Concomitant]
     Indication: BLADDER DISORDER
  5. SPIRONOLACTONE [Concomitant]
     Indication: BLOOD POTASSIUM
  6. FUROSEMIDE [Concomitant]
  7. PROTONIX [Concomitant]
     Indication: HYPERCHLORHYDRIA
  8. PROVACHOL [Concomitant]
     Indication: BLOOD CHOLESTEROL
  9. CLARINEX [Concomitant]
     Indication: HYPERSENSITIVITY
  10. EFFEXOR XR [Concomitant]
     Indication: DEPRESSION
  11. ACETAMINOPHEN [Concomitant]
     Indication: PAIN
  12. PREDNISONE [Concomitant]

REACTIONS (8)
  - COMMUNICATION DISORDER [None]
  - CONSTIPATION [None]
  - FALL [None]
  - HAEMORRHOIDS [None]
  - MUSCLE TWITCHING [None]
  - RECTAL HAEMORRHAGE [None]
  - SLEEP DISORDER [None]
  - ULCER [None]
